FAERS Safety Report 26063505 (Version 1)
Quarter: 2025Q4

REPORT INFORMATION
  Report Type: Spontaneous
  Country: US (occurrence: None)
  Receive Date: 20251118
  Receipt Date: 20251118
  Transmission Date: 20260117
  Serious: No
  Sender: FDA-CTU
  Company Number: None

PATIENT
  Age: 69 Year
  Sex: Female
  Weight: 62.1 kg

DRUGS (3)
  1. EZETIMIBE [Suspect]
     Active Substance: EZETIMIBE
     Indication: Hyperlipidaemia
     Dosage: OTHER QUANTITY : 1 TABLET(S);?FREQUENCY : DAILY;?
     Route: 048
     Dates: start: 20250610, end: 20250707
  2. Synthesis 75mcg [Concomitant]
  3. NASALCROM [Concomitant]
     Active Substance: CROMOLYN SODIUM

REACTIONS (5)
  - Dyskinesia [None]
  - Head titubation [None]
  - Therapy cessation [None]
  - Feeling cold [None]
  - Fatigue [None]

NARRATIVE: CASE EVENT DATE: 20250612
